FAERS Safety Report 9314271 (Version 1)
Quarter: 2013Q2

REPORT INFORMATION
  Report Type: Spontaneous
  Country: US (occurrence: None)
  Receive Date: 20130524
  Receipt Date: 20130524
  Transmission Date: 20140414
  Serious: Yes (Other)
  Sender: FDA-Public Use
  Company Number: None

PATIENT
  Age: 50 Year
  Sex: Male
  Weight: 80.74 kg

DRUGS (4)
  1. ATORVASTATIN [Suspect]
     Indication: BLOOD CHOLESTEROL
     Dosage: 1 PER DAY  EACH MORNING  MOUTH
     Route: 048
     Dates: start: 20121230, end: 20130502
  2. ADVIL [Concomitant]
  3. MOTRIN [Concomitant]
  4. COQ10 [Concomitant]

REACTIONS (4)
  - Back pain [None]
  - Arthralgia [None]
  - Arthralgia [None]
  - Pain in extremity [None]
